FAERS Safety Report 25773963 (Version 1)
Quarter: 2025Q3

REPORT INFORMATION
  Report Type: Spontaneous
  Country: US (occurrence: US)
  Receive Date: 20250908
  Receipt Date: 20250908
  Transmission Date: 20251021
  Serious: No
  Sender: SANOFI AVENTIS
  Company Number: US-SA-2025SA264716

PATIENT
  Sex: Female
  Weight: 66.36 kg

DRUGS (17)
  1. DUPIXENT [Suspect]
     Active Substance: DUPILUMAB
     Indication: Dermatitis atopic
     Dosage: 300 MG, QOW
     Route: 058
  2. SULFAMETHOXAZOLE\TRIMETHOPRIM [Concomitant]
     Active Substance: SULFAMETHOXAZOLE\TRIMETHOPRIM
  3. PROCHLORPERAZINE MALEATE [Concomitant]
     Active Substance: PROCHLORPERAZINE MALEATE
  4. PAROXETINE [Concomitant]
     Active Substance: PAROXETINE
  5. LORAZEPAM [Concomitant]
     Active Substance: LORAZEPAM
  6. TRAZODONE HCL [Concomitant]
     Active Substance: TRAZODONE HYDROCHLORIDE
  7. PREDNISONE [Concomitant]
     Active Substance: PREDNISONE
  8. ONDANSETRON HYDROCHLORIDE [Concomitant]
     Active Substance: ONDANSETRON HYDROCHLORIDE
  9. ACETAMINOPHEN\HYDROCODONE [Concomitant]
     Active Substance: ACETAMINOPHEN\HYDROCODONE
  10. METHOCARBAMOL [Concomitant]
     Active Substance: METHOCARBAMOL
  11. CEPHALEXIN [Concomitant]
     Active Substance: CEPHALEXIN
  12. TRIAMCINOLONE ACETONIDE [Concomitant]
     Active Substance: TRIAMCINOLONE ACETONIDE
  13. LATISSE [Concomitant]
     Active Substance: BIMATOPROST
  14. SULFACETAMIDE SODIUM [Concomitant]
     Active Substance: SULFACETAMIDE SODIUM
  15. TRETINOIN [Concomitant]
     Active Substance: TRETINOIN
  16. TACROLIMUS [Concomitant]
     Active Substance: TACROLIMUS
  17. KLARON [Concomitant]
     Active Substance: SULFACETAMIDE SODIUM

REACTIONS (1)
  - Pruritus [Unknown]
